FAERS Safety Report 8177215-2 (Version None)
Quarter: 2012Q1

REPORT INFORMATION
  Report Type: 
  Country: None (occurrence: None)
  Receive Date: 20120301
  Receipt Date: 20120222
  Transmission Date: 20120608
  Serious: Yes (Other)
  Sender: FDA-Public Use
  Company Number: US-JNJFOC-20120212202

PATIENT
  Sex: Male
  Weight: 56.7 kg

DRUGS (2)
  1. REMICADE [Suspect]
     Indication: CROHN'S DISEASE
     Route: 042
     Dates: start: 20080101
  2. REMICADE [Suspect]
     Route: 042
     Dates: start: 20120101

REACTIONS (8)
  - OEDEMA PERIPHERAL [None]
  - JOINT STIFFNESS [None]
  - HAND DEFORMITY [None]
  - JOINT SWELLING [None]
  - HYPOKINESIA [None]
  - DRUG INEFFECTIVE [None]
  - INFLAMMATION [None]
  - SKIN MASS [None]
